FAERS Safety Report 8769336 (Version 4)
Quarter: 2013Q2

REPORT INFORMATION
  Report Type: Spontaneous
  Country: US (occurrence: US)
  Receive Date: 20120905
  Receipt Date: 20130429
  Transmission Date: 20140414
  Serious: Yes (Hospitalization, Disabling, Other)
  Sender: FDA-Public Use
  Company Number: US-009507513-1208USA012636

PATIENT
  Sex: Female
  Weight: 85.26 kg

DRUGS (2)
  1. NUVARING [Suspect]
     Indication: BREAST TENDERNESS
     Dosage: UNK
     Dates: start: 201005, end: 201009
  2. NUVARING [Suspect]
     Indication: CONTRACEPTION

REACTIONS (15)
  - Suicide attempt [Unknown]
  - Cerebrovascular accident [Unknown]
  - Migraine [Unknown]
  - Adjustment disorder with depressed mood [Unknown]
  - Anxiety [Unknown]
  - Hepatic function abnormal [Recovered/Resolved]
  - Tinnitus [Recovered/Resolved]
  - Lacunar infarction [Unknown]
  - Headache [Unknown]
  - Adverse drug reaction [Unknown]
  - Feeling abnormal [Unknown]
  - Depression [Unknown]
  - Vitamin D deficiency [Unknown]
  - Blood glucose increased [Unknown]
  - Abdominal pain [Unknown]
